FAERS Safety Report 15837933 (Version 1)
Quarter: 2018Q4

REPORT INFORMATION
  Report Type: Spontaneous
  Country: US (occurrence: US)
  Receive Date: 20181224
  Receipt Date: 20181224
  Transmission Date: 20190205
  Serious: Yes (Hospitalization)
  Sender: FDA-Public Use
  Company Number: None

PATIENT
  Sex: Male
  Weight: 134.6 kg

DRUGS (3)
  1. DOCETAXEL. [Suspect]
     Active Substance: DOCETAXEL
     Dates: end: 20181130
  2. CASODEX [Suspect]
     Active Substance: BICALUTAMIDE
     Dates: end: 20180803
  3. LEUPROLIDE ACETATE. [Suspect]
     Active Substance: LEUPROLIDE ACETATE
     Dates: end: 20180604

REACTIONS (10)
  - Hypotension [None]
  - Pyrexia [None]
  - Cough [None]
  - Dyspnoea [None]
  - Chills [None]
  - Oropharyngeal pain [None]
  - Dysphonia [None]
  - Ear congestion [None]
  - Upper respiratory tract infection [None]
  - Nasal congestion [None]

NARRATIVE: CASE EVENT DATE: 20181204
